FAERS Safety Report 5154953-7 (Version None)
Quarter: 2006Q4

REPORT INFORMATION
  Report Type: 
  Country: None (occurrence: None)
  Receive Date: 20061120
  Receipt Date: 20061120
  Transmission Date: 20070319
  Serious: Yes (Hospitalization, Other)
  Sender: FDA-Public Use
  Company Number: None

PATIENT
  Age: 80 Year
  Sex: Female

DRUGS (4)
  1. TEMODAR [Suspect]
     Indication: GLIOMA
     Dosage: UNKNOWN
  2. DECADRON [Concomitant]
  3. PREVCID [Concomitant]
  4. ATIVAN [Concomitant]

REACTIONS (1)
  - PANCYTOPENIA [None]
